FAERS Safety Report 4710928-0 (Version None)
Quarter: 2005Q2

REPORT INFORMATION
  Report Type: 
  Country: None (occurrence: None)
  Receive Date: 20050629
  Receipt Date: 20050518
  Transmission Date: 20051028
  Serious: No
  Sender: FDA-Public Use
  Company Number: 04P-163-0273986-00

PATIENT
  Age: 66 Year
  Sex: Female
  Weight: 56.6996 kg

DRUGS (13)
  1. HUMIRA [Suspect]
     Indication: RHEUMATOID ARTHRITIS
     Dosage: 40 MG, 1 IN 2 WK, SUBCUTANEOUS
     Route: 058
     Dates: start: 20040701, end: 20041001
  2. HUMIRA [Suspect]
     Indication: RHEUMATOID ARTHRITIS
     Dosage: 40 MG, 1 IN 2 WK, SUBCUTANEOUS
     Route: 058
     Dates: start: 20041101, end: 20050301
  3. HUMIRA [Suspect]
     Indication: RHEUMATOID ARTHRITIS
     Dosage: 40 MG, 1 IN 2 WK, SUBCUTANEOUS
     Route: 058
     Dates: start: 20050501
  4. METHOTREXATE [Concomitant]
  5. NAPROXEN SODIUM [Concomitant]
  6. PREDNISONE [Concomitant]
  7. FISH OIL [Concomitant]
  8. CALCIUM GLUCONATE [Concomitant]
  9. AMLODIPINE BESYLATE [Concomitant]
  10. ALENDRONATE SODIUM [Concomitant]
  11. ESOMEPRAZOLE [Concomitant]
  12. FOLTEX [Concomitant]
  13. LEFLUNOMIDE [Concomitant]

REACTIONS (10)
  - ABDOMINAL PAIN [None]
  - ANAEMIA [None]
  - DRUG INEFFECTIVE [None]
  - FAECES DISCOLOURED [None]
  - FALL [None]
  - GASTROINTESTINAL ULCER [None]
  - INJECTION SITE HAEMORRHAGE [None]
  - NECK PAIN [None]
  - VOMITING [None]
  - WRIST FRACTURE [None]
